FAERS Safety Report 20040736 (Version 1)
Quarter: 2021Q4

REPORT INFORMATION
  Report Type: Spontaneous
  Country: US (occurrence: None)
  Receive Date: 20211105
  Receipt Date: 20211105
  Transmission Date: 20220303
  Serious: Yes (Hospitalization)
  Sender: FDA-Public Use
  Company Number: None

PATIENT
  Age: 70 Year
  Weight: 101 kg

DRUGS (2)
  1. IMDEVIMAB [Suspect]
     Active Substance: IMDEVIMAB
     Indication: COVID-19
     Dates: start: 20211012, end: 20211012
  2. CASIRIVIMAB [Suspect]
     Active Substance: CASIRIVIMAB
     Indication: COVID-19

REACTIONS (4)
  - Back pain [None]
  - Dyspnoea [None]
  - Hypoxia [None]
  - COVID-19 pneumonia [None]

NARRATIVE: CASE EVENT DATE: 20211013
